FAERS Safety Report 10461190 (Version 1)
Quarter: 2014Q3

REPORT INFORMATION
  Report Type: Spontaneous
  Country: AU (occurrence: None)
  Receive Date: 20140916
  Receipt Date: 20140916
  Transmission Date: 20150326
  Serious: Yes (Other)
  Sender: FDA-Public Use
  Company Number: 2014-20334

PATIENT
  Age: 74 Year
  Sex: Female

DRUGS (1)
  1. EYLEA [Suspect]
     Active Substance: AFLIBERCEPT
     Indication: AGE-RELATED MACULAR DEGENERATION
     Dosage: OS, Q8/52
     Route: 031
     Dates: start: 201304

REACTIONS (1)
  - Coeliac disease [None]

NARRATIVE: CASE EVENT DATE: 201408
